FAERS Safety Report 7948788-7 (Version None)
Quarter: 2011Q4

REPORT INFORMATION
  Report Type: 
  Country: None (occurrence: None)
  Receive Date: 20111130
  Receipt Date: 20111121
  Transmission Date: 20120403
  Serious: Yes (Other)
  Sender: FDA-Public Use
  Company Number: US-JNJFOC-20111109877

PATIENT
  Sex: Male

DRUGS (4)
  1. ZYRTEC [Suspect]
     Route: 048
     Dates: end: 20111101
  2. ZYRTEC [Suspect]
     Indication: SEASONAL ALLERGY
     Route: 048
     Dates: end: 20111101
  3. ZYRTEC [Suspect]
     Indication: PRURITUS
     Route: 048
     Dates: start: 20100801, end: 20101101
  4. ZYRTEC [Suspect]
     Route: 048
     Dates: start: 20100801, end: 20101101

REACTIONS (2)
  - PRURITUS GENERALISED [None]
  - WITHDRAWAL SYNDROME [None]
